FAERS Safety Report 17968207 (Version 2)
Quarter: 2020Q4

REPORT INFORMATION
  Report Type: Spontaneous
  Country: US (occurrence: US)
  Receive Date: 20200701
  Receipt Date: 20201116
  Transmission Date: 20210113
  Serious: Yes (Other)
  Sender: FDA-Public Use
  Company Number: US-PFIZER INC-2020252118

PATIENT
  Age: 68 Year
  Sex: Male

DRUGS (1)
  1. LYRICA [Suspect]
     Active Substance: PREGABALIN
     Dosage: 1 DF, 2X/DAY (1 CAPSULE BY MOUTH TWICE A DAY AS DIRECTED BY PHYSICIAN)
     Route: 048

REACTIONS (2)
  - Myocardial infarction [Unknown]
  - Muscle spasms [Unknown]
